FAERS Safety Report 8101254 (Version 4)
Quarter: 2013Q4

REPORT INFORMATION
  Report Type: Spontaneous
  Country: US (occurrence: US)
  Receive Date: 20110823
  Receipt Date: 20131127
  Transmission Date: 20140711
  Serious: Yes (Hospitalization, Other)
  Sender: FDA-Public Use
  Company Number: US-BAYER-2011-075606

PATIENT
  Age: 36 Year
  Sex: Female

DRUGS (3)
  1. YAZ [Suspect]
     Dosage: UNK
     Dates: start: 200709, end: 200907
  2. EFFEXOR [Concomitant]
     Dosage: 75 MG, QD
     Dates: start: 20081023, end: 20081103
  3. ATENOLOL [Concomitant]
     Dosage: 50 MG, QD
     Dates: start: 20081023, end: 20081103

REACTIONS (2)
  - Gallbladder injury [None]
  - Cholecystitis chronic [None]
